FAERS Safety Report 15297358 (Version 3)
Quarter: 2018Q4

REPORT INFORMATION
  Report Type: Report from Study
  Country: MX (occurrence: MX)
  Receive Date: 20180820
  Receipt Date: 20181003
  Transmission Date: 20190204
  Serious: Yes (Other)
  Sender: FDA-Public Use
  Company Number: MX-ELI_LILLY_AND_COMPANY-MX201808007782

PATIENT
  Age: 54 Year
  Sex: Female
  Weight: 35 kg

DRUGS (3)
  1. 5-FLUOROURACIL                     /00098801/ [Concomitant]
     Active Substance: FLUOROURACIL
     Indication: TONGUE NEOPLASM MALIGNANT STAGE UNSPECIFIED
     Dosage: 3000 MG, UNK
     Route: 042
  2. CETUXIMAB. [Suspect]
     Active Substance: CETUXIMAB
     Indication: TONGUE NEOPLASM MALIGNANT STAGE UNSPECIFIED
     Dosage: 440 MG, WEEKLY (1/W)
     Route: 042
     Dates: start: 20180523
  3. CARBOPLATIN. [Concomitant]
     Active Substance: CARBOPLATIN
     Indication: TONGUE NEOPLASM MALIGNANT STAGE UNSPECIFIED
     Dosage: 360 MG, UNK
     Route: 042

REACTIONS (7)
  - Oral pain [Unknown]
  - Hypotension [Recovered/Resolved]
  - Decreased appetite [Unknown]
  - Post procedural complication [Unknown]
  - Pallor [Recovered/Resolved]
  - Loss of consciousness [Recovered/Resolved]
  - Diarrhoea [Unknown]

NARRATIVE: CASE EVENT DATE: 2018
